FAERS Safety Report 10366026 (Version 1)
Quarter: 2014Q1

REPORT INFORMATION
  Report Type: Spontaneous
  Country: US (occurrence: None)
  Receive Date: 20140306
  Receipt Date: 20140306
  Transmission Date: 20141002
  Serious: Yes (Life-Threatening)
  Sender: FDA-Public Use
  Company Number: 163-21880-13030083

PATIENT
  Age: 78 Year
  Sex: Female

DRUGS (1)
  1. REVLIMID (LENALIDOMIDE) (CAPSULES) [Suspect]
     Indication: PLASMA CELL MYELOMA
     Dosage: 2.5 MG, 21 IN 28 D, PO
     Route: 048
     Dates: start: 20120113

REACTIONS (1)
  - Pulmonary embolism [None]
